FAERS Safety Report 6752438-5 (Version None)
Quarter: 2010Q2

REPORT INFORMATION
  Report Type: 
  Country: None (occurrence: None)
  Receive Date: 20100602
  Receipt Date: 20100521
  Transmission Date: 20101027
  Serious: Yes (Hospitalization, Other)
  Sender: FDA-Public Use
  Company Number: US-ELI_LILLY_AND_COMPANY-US201003006934

PATIENT
  Sex: Male

DRUGS (8)
  1. BYETTA [Suspect]
     Dosage: 5 UG, UNKNOWN
     Route: 065
     Dates: start: 20060310, end: 20060524
  2. BYETTA [Suspect]
     Dosage: 10 UG, 2/D
     Route: 065
     Dates: start: 20060524
  3. BYETTA [Suspect]
     Dosage: 5 UG, 2/D
     Dates: start: 20061015, end: 20071127
  4. BYETTA [Suspect]
     Dosage: 10 UG, UNKNOWN
     Route: 065
     Dates: start: 20071127, end: 20080501
  5. METFORMIN HCL [Concomitant]
     Indication: TYPE 2 DIABETES MELLITUS
     Dosage: 1000 MG, EACH MORNING
     Dates: end: 20080501
  6. METFORMIN HCL [Concomitant]
     Dosage: 1000 MG, EACH EVENING
     Dates: end: 20080501
  7. METFORMIN HCL [Concomitant]
     Dosage: 1000 MG, 2/D
     Dates: start: 20081124
  8. AVANDIA /01445802/ [Concomitant]
     Dosage: 2 MG, EACH EVENING
     Dates: start: 20061015

REACTIONS (5)
  - BLOOD CREATININE INCREASED [None]
  - GASTROINTESTINAL OBSTRUCTION [None]
  - ILEUS PARALYTIC [None]
  - RENAL DISORDER [None]
  - VASCULAR GRAFT [None]
